FAERS Safety Report 23154326 (Version 2)
Quarter: 2024Q1

REPORT INFORMATION
  Report Type: Spontaneous
  Country: ES (occurrence: ES)
  Receive Date: 20231107
  Receipt Date: 20240304
  Transmission Date: 20240410
  Serious: No
  Sender: FDA-Public Use
  Company Number: ES-SCALL-2023-EME-032313

PATIENT
  Sex: Female

DRUGS (2)
  1. DUTASTERIDE [Suspect]
     Active Substance: DUTASTERIDE
     Route: 065
  2. MINOXIDIL [Suspect]
     Active Substance: MINOXIDIL
     Route: 048

REACTIONS (1)
  - Drug exposure before pregnancy [Unknown]
